FAERS Safety Report 8044502-8 (Version None)
Quarter: 2012Q1

REPORT INFORMATION
  Report Type: 
  Country: None (occurrence: None)
  Receive Date: 20120113
  Receipt Date: 20120110
  Transmission Date: 20120608
  Serious: Yes (Other)
  Sender: FDA-Public Use
  Company Number: JP-JNJFOC-20120104194

PATIENT
  Age: 77 Year
  Sex: Male

DRUGS (3)
  1. GARENOXACIN MESYLATE [Concomitant]
     Indication: ANTIBIOTIC THERAPY
     Route: 048
  2. ITRACONAZOLE [Suspect]
     Indication: ASPERGILLOSIS
     Route: 048
  3. ITRACONAZOLE [Suspect]
     Route: 048

REACTIONS (3)
  - PNEUMONIA [None]
  - PLEURAL EFFUSION [None]
  - HYPOKALAEMIA [None]
